FAERS Safety Report 15129813 (Version 1)
Quarter: 2018Q3

REPORT INFORMATION
  Report Type: Spontaneous
  Country: US (occurrence: US)
  Receive Date: 20180711
  Receipt Date: 20180711
  Transmission Date: 20181010
  Serious: No
  Sender: FDA-Public Use
  Company Number: US-SA-2018SA177814

PATIENT
  Sex: Male
  Weight: 95.2 kg

DRUGS (13)
  1. VITAMIN C ACID [Concomitant]
     Active Substance: ASCORBIC ACID
  2. OMEGA?3 FATTY ACIDS [Concomitant]
     Active Substance: OMEGA-3 FATTY ACIDS
  3. TACROLIMUS. [Concomitant]
     Active Substance: TACROLIMUS
  4. METFORMIN HYDROCHLORIDE. [Concomitant]
     Active Substance: METFORMIN HYDROCHLORIDE
  5. LAMOTRIGINE. [Concomitant]
     Active Substance: LAMOTRIGINE
  6. OMEPRAZOLE. [Concomitant]
     Active Substance: OMEPRAZOLE
  7. VENLAFAXINE HYDROCHLORIDE. [Concomitant]
     Active Substance: VENLAFAXINE HYDROCHLORIDE
  8. ARMODAFINIL. [Concomitant]
     Active Substance: ARMODAFINIL
  9. NEOSALUS [Concomitant]
  10. VITAMIN D3 [Concomitant]
     Active Substance: CHOLECALCIFEROL
  11. DUPIXENT [Suspect]
     Active Substance: DUPILUMAB
     Indication: DERMATITIS ATOPIC
     Dosage: 300 MG, QOW
     Dates: start: 20180524
  12. METAMUCIL CITRON [Concomitant]
  13. ELIDEL [Concomitant]
     Active Substance: PIMECROLIMUS

REACTIONS (7)
  - Skin exfoliation [Unknown]
  - Peripheral swelling [Unknown]
  - Dermatitis atopic [Unknown]
  - Dry skin [Unknown]
  - Skin fissures [Unknown]
  - Pruritus [Unknown]
  - Skin weeping [Unknown]
